FAERS Safety Report 7688127-2 (Version None)
Quarter: 2011Q3

REPORT INFORMATION
  Report Type: 
  Country: None (occurrence: None)
  Receive Date: 20110817
  Receipt Date: 20110805
  Transmission Date: 20111222
  Serious: Yes (Death)
  Sender: FDA-Public Use
  Company Number: MX-ELI_LILLY_AND_COMPANY-MX201108002280

PATIENT
  Sex: Female

DRUGS (2)
  1. CYMBALTA [Suspect]
     Dosage: UNK, UNKNOWN
  2. CHEMOTHERAPEUTICS [Concomitant]
     Indication: NEOPLASM MALIGNANT

REACTIONS (1)
  - DEATH [None]
